FAERS Safety Report 8823264 (Version 1)
Quarter: 2012Q4

REPORT INFORMATION
  Report Type: 
  Country: TR (occurrence: TR)
  Receive Date: 20121003
  Receipt Date: 20121003
  Transmission Date: 20130627
  Serious: Yes (Other)
  Sender: FDA-Public Use
  Company Number: TR-GLAXOSMITHKLINE-B0763071A

PATIENT
  Sex: Female

DRUGS (1)
  1. ZYBAN [Suspect]
     Indication: EX-TOBACCO USER
     Route: 065
     Dates: start: 20111027, end: 20111111

REACTIONS (3)
  - Stillbirth [Unknown]
  - Abortion spontaneous [Unknown]
  - Exposure during pregnancy [Unknown]
